FAERS Safety Report 6552927-2 (Version None)
Quarter: 2010Q1

REPORT INFORMATION
  Report Type: 
  Country: None (occurrence: None)
  Receive Date: 20100122
  Receipt Date: 20100111
  Transmission Date: 20100710
  Serious: Yes (Death)
  Sender: FDA-Public Use
  Company Number: 1000011340

PATIENT
  Age: 76 Year
  Sex: Male

DRUGS (5)
  1. MEMANTINE HCL [Suspect]
     Indication: DEMENTIA
     Dosage: 5 MG (5 MG,1 IN 1 D),ORAL ; 20 MG (20 MG,1 IN 1 D),ORAL
     Route: 048
     Dates: start: 20081216, end: 20090722
  2. MEMANTINE HCL [Suspect]
     Indication: DEMENTIA
     Dosage: 5 MG (5 MG,1 IN 1 D),ORAL ; 20 MG (20 MG,1 IN 1 D),ORAL
     Route: 048
     Dates: start: 20081118
  3. ANTI-ARRHYTHMICS (NOS) [Concomitant]
  4. BRONCHODILATORS (NOS) [Concomitant]
  5. ANTICOAGULANTS (NOS) [Concomitant]

REACTIONS (3)
  - CARDIAC FAILURE [None]
  - FATIGUE [None]
  - SOMNOLENCE [None]
